FAERS Safety Report 5211920-2 (Version None)
Quarter: 2006Q4

REPORT INFORMATION
  Report Type: 
  Country: None (occurrence: None)
  Receive Date: 20061107
  Receipt Date: 20060807
  Transmission Date: 20070319
  Serious: No
  Sender: FDA-Public Use
  Company Number: 200614920BWH

PATIENT
  Age: 36 Year
  Sex: Male

DRUGS (3)
  1. LEVITRA [Suspect]
     Indication: ERECTILE DYSFUNCTION
     Dosage: 20 MG, PRN, ORAL
     Route: 048
     Dates: start: 20060301, end: 20060101
  2. VIAGRA [Concomitant]
  3. CIALIS [Concomitant]

REACTIONS (1)
  - ERECTILE DYSFUNCTION [None]
